FAERS Safety Report 5586822-2 (Version None)
Quarter: 2008Q1

REPORT INFORMATION
  Report Type: 
  Country: None (occurrence: None)
  Receive Date: 20080110
  Receipt Date: 20080102
  Transmission Date: 20080703
  Serious: Yes (Other)
  Sender: FDA-Public Use
  Company Number: BR-ROCHE-539804

PATIENT
  Sex: Female

DRUGS (6)
  1. ROACUTAN [Suspect]
     Indication: ACNE
     Route: 048
     Dates: start: 20061007, end: 20070101
  2. ROACUTAN [Suspect]
     Route: 048
     Dates: start: 20070101, end: 20070301
  3. ROACUTAN [Suspect]
     Route: 048
     Dates: start: 20070401, end: 20070701
  4. ROACUTAN [Suspect]
     Route: 048
     Dates: start: 20070701, end: 20071001
  5. ROACUTAN [Suspect]
     Route: 048
     Dates: start: 20071001, end: 20071101
  6. ROACUTAN [Suspect]
     Dosage: ON ALTERNATE DAYS
     Route: 048
     Dates: start: 20071101

REACTIONS (5)
  - ACNE [None]
  - BURNING SENSATION [None]
  - SCAR [None]
  - SKIN DISCOLOURATION [None]
  - SUICIDAL IDEATION [None]
